FAERS Safety Report 6170137-8 (Version None)
Quarter: 2009Q2

REPORT INFORMATION
  Report Type: 
  Country: None (occurrence: None)
  Receive Date: 20090428
  Receipt Date: 20090428
  Transmission Date: 20091009
  Serious: Yes (Hospitalization)
  Sender: FDA-Public Use
  Company Number: A0780701A

PATIENT
  Age: 49 Year
  Sex: Female

DRUGS (2)
  1. NICORETTE [Suspect]
     Indication: SMOKING CESSATION THERAPY
     Route: 002
  2. NICORETTE [Suspect]
     Indication: SMOKING CESSATION THERAPY
     Route: 002

REACTIONS (11)
  - ABASIA [None]
  - ASTHENIA [None]
  - BLOOD PRESSURE INCREASED [None]
  - DIZZINESS [None]
  - HAEMOGLOBIN DECREASED [None]
  - INTENTIONAL DRUG MISUSE [None]
  - MALAISE [None]
  - NICOTINE DEPENDENCE [None]
  - PALLOR [None]
  - PALPITATIONS [None]
  - VOLUME BLOOD DECREASED [None]
